FAERS Safety Report 8014915-9 (Version None)
Quarter: 2011Q4

REPORT INFORMATION
  Report Type: 
  Country: None (occurrence: None)
  Receive Date: 20111229
  Receipt Date: 20111223
  Transmission Date: 20120403
  Serious: Yes (Life-Threatening, Hospitalization)
  Sender: FDA-Public Use
  Company Number: FR-B.I. PHARMACEUTICALS,INC./RIDGEFIELD-2011-FF-01219FF

PATIENT
  Sex: Female
  Weight: 46 kg

DRUGS (5)
  1. ACETAMINOPHEN [Suspect]
     Indication: BACK PAIN
     Dosage: 1500 MG
     Route: 048
     Dates: start: 20060801, end: 20060801
  2. ACETAMINOPHEN [Concomitant]
     Route: 048
     Dates: start: 20060531, end: 20060601
  3. ZENTEL [Suspect]
     Indication: PAIN
     Route: 048
     Dates: start: 20060801, end: 20060801
  4. MOBIC [Suspect]
     Route: 048
     Dates: start: 20060701, end: 20060701
  5. OMEPRAZOLE [Concomitant]
     Route: 048
     Dates: start: 20060531, end: 20060601

REACTIONS (8)
  - VOMITING [None]
  - CHOLELITHIASIS [None]
  - HYPERSENSITIVITY [None]
  - ABDOMINAL PAIN [None]
  - KLEBSIELLA SEPSIS [None]
  - HEPATITIS TOXIC [None]
  - LIVER TRANSPLANT [None]
  - LIP OEDEMA [None]
